FAERS Safety Report 18524468 (Version 4)
Quarter: 2021Q1

REPORT INFORMATION
  Report Type: Report from Study
  Country: BR (occurrence: BR)
  Receive Date: 20201119
  Receipt Date: 20210225
  Transmission Date: 20210419
  Serious: Yes (Death, Other)
  Sender: FDA-Public Use
  Company Number: BR-TAKEDA-BR202019699

PATIENT
  Age: 10 Year
  Sex: Male
  Weight: 24 kg

DRUGS (6)
  1. IDURSULFASE [Suspect]
     Active Substance: IDURSULFASE
     Indication: MUCOPOLYSACCHARIDOSIS II
     Dosage: 2 DOSAGE FORM
     Route: 042
     Dates: start: 2016
  2. CARBAMAZEPINE. [Concomitant]
     Active Substance: CARBAMAZEPINE
     Indication: SEIZURE
     Dosage: 20 MILLIGRAM, 3 TIMES A DAY
     Route: 065
  3. IDURSULFASE [Suspect]
     Active Substance: IDURSULFASE
     Dosage: UNK
     Route: 065
  4. IDURSULFASE [Suspect]
     Active Substance: IDURSULFASE
     Dosage: 3 UNK
     Route: 042
     Dates: start: 2016
  5. BACLOFEN. [Concomitant]
     Active Substance: BACLOFEN
     Route: 065
  6. IDURSULFASE [Suspect]
     Active Substance: IDURSULFASE
     Dosage: 2 VIALS EVERY 7 DAYS
     Route: 042
     Dates: start: 20150615, end: 20210217

REACTIONS (19)
  - COVID-19 [Unknown]
  - Body height increased [Unknown]
  - Weight increased [Unknown]
  - Dyspnoea [Not Recovered/Not Resolved]
  - Macroglossia [Unknown]
  - Death [Fatal]
  - Seizure [Recovering/Resolving]
  - Condition aggravated [Recovered/Resolved with Sequelae]
  - Erythema [Not Recovered/Not Resolved]
  - Off label use [Recovering/Resolving]
  - Neurodegenerative disorder [Not Recovered/Not Resolved]
  - Weight decreased [Recovered/Resolved]
  - Poor venous access [Not Recovered/Not Resolved]
  - Pyrexia [Recovered/Resolved]
  - Oedema peripheral [Not Recovered/Not Resolved]
  - Product dose omission issue [Unknown]
  - Rash macular [Recovered/Resolved]
  - Sleep apnoea syndrome [Unknown]
  - Eating disorder [Unknown]

NARRATIVE: CASE EVENT DATE: 2020
